FAERS Safety Report 7033756-2 (Version None)
Quarter: 2010Q4

REPORT INFORMATION
  Report Type: 
  Country: None (occurrence: None)
  Receive Date: 20101007
  Receipt Date: 20100921
  Transmission Date: 20110411
  Serious: Yes (Other)
  Sender: FDA-Public Use
  Company Number: PHHY2010BR65958

PATIENT
  Age: 68 Year
  Sex: Male
  Weight: 91 kg

DRUGS (11)
  1. DIOVAN HCT [Suspect]
     Dosage: 160/12.5 MG ONCE DAILY
  2. DIOVAN HCT [Suspect]
     Dosage: 320/12.5 MG ONCE DAILY
  3. AMLODIPINE [Concomitant]
     Dosage: 10 MG, QD
  4. AMLODIPINE [Concomitant]
     Dosage: 5 MG, QD
  5. SIMVASTATIN [Concomitant]
     Dosage: 20 MG, QD
  6. ACETYLSALICYLIC ACID SRT [Concomitant]
     Dosage: 100 MG, QD
  7. CLOPIDOGREL [Concomitant]
     Dosage: 75 MG, QD
  8. METOPROLOL TARTRATE [Concomitant]
     Dosage: 25 MG, QD
  9. METOPROLOL TARTRATE [Concomitant]
     Dosage: 50 MG, QD
  10. RAMIPRIL [Concomitant]
     Dosage: 10 MG, QD
  11. ALISKIREN [Concomitant]
     Dosage: 300 MG, QD

REACTIONS (11)
  - BLOOD PRESSURE INADEQUATELY CONTROLLED [None]
  - BODY MASS INDEX INCREASED [None]
  - CORONARY ANGIOPLASTY [None]
  - CORONARY ARTERIAL STENT INSERTION [None]
  - COUGH [None]
  - GASTROOESOPHAGEAL REFLUX DISEASE [None]
  - HEADACHE [None]
  - HEART INJURY [None]
  - HYPERTENSION [None]
  - MYOCARDIAL ISCHAEMIA [None]
  - OEDEMA [None]
